FAERS Safety Report 24254133 (Version 1)
Quarter: 2024Q3

REPORT INFORMATION
  Report Type: Report from Study
  Country: GB (occurrence: None)
  Receive Date: 20240827
  Receipt Date: 20240827
  Transmission Date: 20241017
  Serious: Yes (Hospitalization)
  Sender: ASTRAZENECA
  Company Number: 2024A190438

PATIENT
  Sex: Female

DRUGS (1)
  1. FASENRA [Suspect]
     Active Substance: BENRALIZUMAB
     Indication: Asthma
     Dosage: 30.0MG UNKNOWN
     Route: 058
     Dates: start: 20240522

REACTIONS (6)
  - Illness [Unknown]
  - Diarrhoea [Unknown]
  - Fatigue [Unknown]
  - Gastroenteritis [Unknown]
  - Decreased appetite [Unknown]
  - Weight decreased [Unknown]
